FAERS Safety Report 10932009 (Version 1)
Quarter: 2015Q1

REPORT INFORMATION
  Report Type: Spontaneous
  Country: JP (occurrence: JP)
  Receive Date: 20150319
  Receipt Date: 20150319
  Transmission Date: 20150721
  Serious: Yes (Other)
  Sender: FDA-Public Use
  Company Number: PHHY2014JP165443

PATIENT
  Age: 85 Year
  Sex: Male

DRUGS (5)
  1. RIVASTACH [Suspect]
     Active Substance: RIVASTIGMINE
     Indication: DEMENTIA ALZHEIMER^S TYPE
     Dosage: 1.9 MG/ 24 HOURS (4.5 MG RIVASTIGMINE BASE, ONCE DAILY)
     Route: 062
     Dates: start: 20140605, end: 201411
  2. GLACTIV [Concomitant]
     Active Substance: SITAGLIPTIN
     Indication: PRODUCT USED FOR UNKNOWN INDICATION
     Dosage: UNK
     Route: 065
     Dates: start: 20140219
  3. RIVASTACH [Suspect]
     Active Substance: RIVASTIGMINE
     Dosage: 6.9 MG, QD (13.5 MG RIVASTIGMINE BASE, ONCE DAILY)
     Route: 062
     Dates: start: 201411, end: 20141119
  4. RIVASTACH [Suspect]
     Active Substance: RIVASTIGMINE
     Dosage: 9.5 MG/ 24 HOURS (18 MG RIVASTIGMINE BASE, ONCE DAILY)
     Route: 062
     Dates: start: 20141120, end: 20141208
  5. RIVASTACH [Suspect]
     Active Substance: RIVASTIGMINE
     Dosage: 6.9 MG/ 24 HOURS (13.5 MG RIVASTIGMINE BASE, ONCE DAILY)
     Route: 062
     Dates: start: 20141209

REACTIONS (1)
  - Blood glucose increased [Recovered/Resolved]

NARRATIVE: CASE EVENT DATE: 20140820
